FAERS Safety Report 21899013 (Version 3)
Quarter: 2023Q1

REPORT INFORMATION
  Report Type: Report from Study
  Country: US (occurrence: US)
  Receive Date: 20230123
  Receipt Date: 20230315
  Transmission Date: 20230417
  Serious: Yes (Hospitalization, Other)
  Sender: FDA-Public Use
  Company Number: US-GILEAD-2023-0611905

PATIENT
  Sex: Male

DRUGS (4)
  1. AMBRISENTAN [Suspect]
     Active Substance: AMBRISENTAN
     Indication: Pulmonary hypertension
     Dosage: 5 MG, QD
     Route: 048
     Dates: start: 20210120
  2. PREDNISONE [Suspect]
     Active Substance: PREDNISONE
     Indication: Product used for unknown indication
     Dosage: 20 MG UNK
     Route: 065
  3. UPTRAVI [Concomitant]
     Active Substance: SELEXIPAG
  4. CATHFLO ACTIVASE [Concomitant]
     Active Substance: ALTEPLASE

REACTIONS (15)
  - Multiple allergies [Unknown]
  - Asthma [Unknown]
  - Sickle cell disease [Unknown]
  - Pruritus [Unknown]
  - Throat tightness [Unknown]
  - Productive cough [Unknown]
  - Weight increased [Unknown]
  - Nausea [Unknown]
  - Hypersensitivity [Unknown]
  - Cough [Unknown]
  - Blood calcium decreased [Unknown]
  - Vitamin D decreased [Unknown]
  - Dyspnoea [Unknown]
  - Abdominal distension [Unknown]
  - Product dose omission issue [Unknown]
